FAERS Safety Report 8459112-8 (Version None)
Quarter: 2012Q2

REPORT INFORMATION
  Report Type: 
  Country: None (occurrence: None)
  Receive Date: 20120615
  Receipt Date: 20120602
  Transmission Date: 20120825
  Serious: Yes (Other)
  Sender: FDA-Public Use
  Company Number: JP-2012-13934

PATIENT
  Age: 69 Year
  Sex: Male
  Weight: 63 kg

DRUGS (18)
  1. ROCEPHIN [Concomitant]
  2. BISOPROLOL FUMARATE [Concomitant]
  3. HANP (CARPERITIDE) INJECTION [Concomitant]
  4. NOVO HEPARIN (HEPARIN) INJECTION [Concomitant]
  5. VERAPAMIL HYDROCHLORIDE [Concomitant]
  6. LANTUS [Concomitant]
  7. NOVORAPID (INSULIN ASPART) INJECTION [Concomitant]
  8. LASIX [Concomitant]
  9. LANDEL (EFONIDIPINE HYDROCHLORIDE) TABLET [Concomitant]
  10. DIOVAN [Concomitant]
  11. ZITHROMAX [Concomitant]
  12. SAMSCA [Suspect]
     Indication: FLUID RETENTION
     Dosage: 15 MG MILLIGRAM(S), QAM, ORAL
     Route: 048
     Dates: start: 20111228, end: 20120127
  13. LASIX [Suspect]
     Indication: CARDIAC FAILURE
     Dosage: 40 MG MILLIGRAM(S), DAILY DOSE, ORAL
     Route: 048
     Dates: start: 20111226, end: 20120215
  14. ADETPHOS (ADENOSINE TRIPHOSPHATE, DISODIUM SALT) INJECTION [Concomitant]
  15. ACTOS [Concomitant]
  16. ALDACTONE [Suspect]
     Indication: CARDIAC FAILURE
     Dosage: 25 MG (MILLIGRAM(S), DAILY DOSE, ORAL
     Route: 048
     Dates: start: 20111226, end: 20120111
  17. VASOLAN (VERAPAMIL HYDROCHLORIDE) INJECTION [Concomitant]
  18. WARFARIN SODIUM [Concomitant]

REACTIONS (4)
  - RENAL IMPAIRMENT [None]
  - HYPERURICAEMIA [None]
  - HYPERKALAEMIA [None]
  - THIRST [None]
